FAERS Safety Report 16345497 (Version 2)
Quarter: 2020Q2

REPORT INFORMATION
  Report Type: Spontaneous
  Country: DK (occurrence: DK)
  Receive Date: 20190523
  Receipt Date: 20200516
  Transmission Date: 20200713
  Serious: Yes (Other)
  Sender: FDA-Public Use
  Company Number: DK-SUN PHARMACEUTICAL INDUSTRIES LTD-2019R1-208638

PATIENT
  Age: 56 Year
  Sex: Female

DRUGS (4)
  1. INFLIXIMAB [Suspect]
     Active Substance: INFLIXIMAB
     Indication: CROHN^S DISEASE
     Dosage: 400 MILLIGRAM (0, 2, 6 AND SUBSEQUENTLY EVERY 8 WEEKS)
     Route: 042
  2. YELLOW FEVER VACCINE NOS [Suspect]
     Active Substance: YELLOW FEVER VIRUS STRAIN 17D-204 LIVE ANTIGEN
     Dosage: 0.5 MILLILITER
     Route: 058
  3. METHOTREXATE. [Suspect]
     Active Substance: METHOTREXATE
     Indication: CROHN^S DISEASE
     Dosage: 25 MILLIGRAM, WEEKLY
     Route: 058
  4. YELLOW FEVER VACCINE NOS [Suspect]
     Active Substance: YELLOW FEVER VIRUS STRAIN 17D-204 LIVE ANTIGEN
     Indication: YELLOW FEVER IMMUNISATION
     Dosage: 0.5 MILLILITER
     Route: 058

REACTIONS (5)
  - Influenza like illness [Recovered/Resolved]
  - Contraindicated product administered [Recovered/Resolved]
  - Viraemia [Recovered/Resolved]
  - Yellow fever [Recovered/Resolved]
  - Transaminases increased [Recovered/Resolved]
